FAERS Safety Report 9856668 (Version 3)
Quarter: 2014Q1

REPORT INFORMATION
  Report Type: Spontaneous
  Country: US (occurrence: US)
  Receive Date: 20140130
  Receipt Date: 20140226
  Transmission Date: 20141002
  Serious: Yes (Death, Life-Threatening, Hospitalization, Disabling, Other)
  Sender: FDA-Public Use
  Company Number: US-GLAXOSMITHKLINE-A1057147A

PATIENT
  Age: 60 Year
  Sex: Female

DRUGS (1)
  1. FLOLAN [Suspect]
     Indication: COR PULMONALE CHRONIC
     Dosage: 56NGKM CONTINUOUS
     Route: 042
     Dates: start: 20080516

REACTIONS (4)
  - Nausea [Unknown]
  - Diarrhoea [Unknown]
  - Renal failure [Unknown]
  - Pulmonary arterial hypertension [Fatal]
